FAERS Safety Report 8386963-0 (Version None)
Quarter: 2012Q2

REPORT INFORMATION
  Report Type: 
  Country: None (occurrence: None)
  Receive Date: 20120525
  Receipt Date: 20120517
  Transmission Date: 20120825
  Serious: Yes (Hospitalization)
  Sender: FDA-Public Use
  Company Number: US-ABBOTT-12P-163-0936472-00

PATIENT
  Sex: Female
  Weight: 71.732 kg

DRUGS (4)
  1. HUMIRA [Suspect]
     Indication: PSORIATIC ARTHROPATHY
     Route: 058
     Dates: start: 20070101
  2. PREVACID [Concomitant]
     Indication: GASTRIC DISORDER
  3. ASPIRIN [Concomitant]
     Indication: CORONARY ARTERY DISEASE
     Dates: start: 20120401
  4. IRON [Concomitant]
     Indication: MINERAL SUPPLEMENTATION

REACTIONS (3)
  - ELECTROCARDIOGRAM ABNORMAL [None]
  - ATRIOVENTRICULAR BLOCK [None]
  - INJECTION SITE ERYTHEMA [None]
